FAERS Safety Report 11689497 (Version 2)
Quarter: 2020Q1

REPORT INFORMATION
  Report Type: Spontaneous
  Country: US (occurrence: US)
  Receive Date: 20151102
  Receipt Date: 20200226
  Transmission Date: 20200409
  Serious: Yes (Death, Hospitalization, Other)
  Sender: FDA-Public Use
  Company Number: US-ASTRAZENECA-2015SF04317

PATIENT
  Age: 22079 Day
  Sex: Female
  Weight: 89.8 kg

DRUGS (17)
  1. BYETTA [Suspect]
     Active Substance: EXENATIDE
     Route: 065
     Dates: start: 200507, end: 200709
  2. ACTOS [Concomitant]
     Active Substance: PIOGLITAZONE HYDROCHLORIDE
  3. IBUPROFEN. [Concomitant]
     Active Substance: IBUPROFEN
     Dates: start: 2008
  4. AVALIDE [Concomitant]
     Active Substance: HYDROCHLOROTHIAZIDE\IRBESARTAN
     Dosage: 300-25 MG
  5. NIACIN. [Concomitant]
     Active Substance: NIACIN
  6. CRESTOR [Concomitant]
     Active Substance: ROSUVASTATIN CALCIUM
  7. METFORMIN [Concomitant]
     Active Substance: METFORMIN HYDROCHLORIDE
  8. BYETTA [Suspect]
     Active Substance: EXENATIDE
     Route: 065
     Dates: start: 20050822, end: 200608
  9. BYETTA [Suspect]
     Active Substance: EXENATIDE
     Route: 065
     Dates: start: 20050822, end: 20051220
  10. BYETTA [Suspect]
     Active Substance: EXENATIDE
     Route: 065
     Dates: start: 20050906
  11. AVAPRO [Concomitant]
     Active Substance: IRBESARTAN
  12. MULTI-VITAMIN [Concomitant]
     Active Substance: .ALPHA.-TOCOPHEROL ACETATE, DL-\ASCORBIC ACID\CYANOCOBALAMIN\FLUORIDE ION\FOLIC ACID\NIACIN\PYRIDOXINE\RIBOFLAVIN\THIAMINE\VITAMIN A\VITAMIN D
     Dates: start: 2008
  13. LEVOTHYROXINE. [Concomitant]
     Active Substance: LEVOTHYROXINE
  14. ADVAIR HFA [Concomitant]
     Active Substance: FLUTICASONE PROPIONATE\SALMETEROL XINAFOATE
  15. DIAZEPAM. [Concomitant]
     Active Substance: DIAZEPAM
     Dates: start: 2008
  16. BYETTA [Suspect]
     Active Substance: EXENATIDE
     Route: 065
     Dates: start: 20061205
  17. SYNTHROID [Concomitant]
     Active Substance: LEVOTHYROXINE SODIUM

REACTIONS (3)
  - Pancreatic carcinoma [Fatal]
  - Jaundice cholestatic [Unknown]
  - Adenocarcinoma pancreas [Unknown]

NARRATIVE: CASE EVENT DATE: 20130604
